FAERS Safety Report 5739706-0 (Version None)
Quarter: 2008Q2

REPORT INFORMATION
  Report Type: 
  Country: None (occurrence: None)
  Receive Date: 20080513
  Receipt Date: 20080502
  Transmission Date: 20081010
  Serious: Yes (Other)
  Sender: FDA-Public Use
  Company Number: 2008011790

PATIENT
  Sex: Male

DRUGS (1)
  1. LISTERINE (MENTHOL, METHYL SALICYLATE, EUCALYPTOL, THYMOL) [Suspect]
     Indication: DENTAL DISORDER PROPHYLAXIS
     Dosage: HALF CAPFUL AT NIGHT BEFORE SLEEP, ORAL
     Route: 048
     Dates: start: 20080425, end: 20080427

REACTIONS (2)
  - FACIAL PALSY [None]
  - STRESS [None]
